FAERS Safety Report 8412451-9 (Version None)
Quarter: 2012Q2

REPORT INFORMATION
  Report Type: 
  Country: None (occurrence: None)
  Receive Date: 20120605
  Receipt Date: 20120520
  Transmission Date: 20120825
  Serious: No
  Sender: FDA-Public Use
  Company Number: US-AMGEN-USASP2012025856

PATIENT
  Age: 42 Year
  Sex: Male

DRUGS (2)
  1. TACLONEX [Concomitant]
     Indication: PSORIASIS
     Dosage: UNK
     Route: 061
  2. ENBREL [Suspect]
     Indication: PSORIASIS
     Dosage: 50 MG, 1-2 TIMES PER WEEK
     Route: 058
     Dates: start: 20110201, end: 20120401

REACTIONS (1)
  - TUBERCULIN TEST POSITIVE [None]
